FAERS Safety Report 12154889 (Version 2)
Quarter: 2016Q1

REPORT INFORMATION
  Report Type: Spontaneous
  Country: JP (occurrence: JP)
  Receive Date: 20160307
  Receipt Date: 20160310
  Transmission Date: 20160526
  Serious: Yes (Other)
  Sender: FDA-Public Use
  Company Number: JP-PFIZER INC-2016135349

PATIENT
  Age: 51 Year
  Sex: Female

DRUGS (1)
  1. CELECOX [Suspect]
     Active Substance: CELECOXIB
     Dosage: UNK
     Dates: start: 201403, end: 201404

REACTIONS (2)
  - Oculomucocutaneous syndrome [Unknown]
  - Stevens-Johnson syndrome [Unknown]

NARRATIVE: CASE EVENT DATE: 2014
